FAERS Safety Report 24212601 (Version 3)
Quarter: 2025Q1

REPORT INFORMATION
  Report Type: Report from Study
  Country: FR (occurrence: FR)
  Receive Date: 20240815
  Receipt Date: 20250304
  Transmission Date: 20250408
  Serious: Yes (Other)
  Sender: AUROBINDO
  Company Number: FR-EMA-DD-20240731-7482827-114521

PATIENT
  Age: 53 Year
  Sex: Male

DRUGS (9)
  1. PREDNISONE [Suspect]
     Active Substance: PREDNISONE
     Indication: Optic neuritis
     Route: 048
  2. PREDNISONE [Suspect]
     Active Substance: PREDNISONE
     Indication: Eosinophilic granulomatosis with polyangiitis
  3. PREDNISONE [Suspect]
     Active Substance: PREDNISONE
     Indication: Pachymeningitis
  4. PREDNISONE [Suspect]
     Active Substance: PREDNISONE
     Indication: Asthma
  5. OMALIZUMAB [Suspect]
     Active Substance: OMALIZUMAB
     Indication: Asthma
     Route: 065
  6. OMALIZUMAB [Suspect]
     Active Substance: OMALIZUMAB
     Indication: Eosinophilic granulomatosis with polyangiitis
  7. AZATHIOPRINE [Suspect]
     Active Substance: AZATHIOPRINE
     Indication: Asthma
     Route: 065
  8. AZATHIOPRINE [Suspect]
     Active Substance: AZATHIOPRINE
     Indication: Eosinophilic granulomatosis with polyangiitis
  9. PREDNISONE [Concomitant]
     Active Substance: PREDNISONE
     Indication: Optic neuritis
     Route: 065

REACTIONS (13)
  - Optic neuritis [Not Recovered/Not Resolved]
  - Visual impairment [Not Recovered/Not Resolved]
  - Headache [Not Recovered/Not Resolved]
  - Visual acuity reduced [Not Recovered/Not Resolved]
  - Pachymeningitis [Unknown]
  - Anosmia [Unknown]
  - Granulomatosis with polyangiitis [Unknown]
  - C-reactive protein increased [Unknown]
  - Pyrexia [Unknown]
  - Disease recurrence [Unknown]
  - Eosinophilic granulomatosis with polyangiitis [Unknown]
  - Rebound effect [Unknown]
  - Drug ineffective [Unknown]
